FAERS Safety Report 9736351 (Version 4)
Quarter: 2014Q2

REPORT INFORMATION
  Report Type: Report from Study
  Country: CA (occurrence: CA)
  Receive Date: 20131206
  Receipt Date: 20140430
  Transmission Date: 20141212
  Serious: Yes (Death, Hospitalization)
  Sender: FDA-Public Use
  Company Number: CA-ROCHE-1278963

PATIENT
  Age: 57 Year
  Sex: Female
  Weight: 56.7 kg

DRUGS (15)
  1. RITUXAN [Suspect]
     Indication: RHEUMATOID ARTHRITIS
     Dosage: FREQUENCY : DAY 1 AND 15, LAST DOSE RECEIVED ON 13/MAY/2013
     Route: 042
     Dates: start: 20130429, end: 20140130
  2. HEPARIN [Concomitant]
  3. DEFEROXAMINE [Concomitant]
  4. ATORVASTATIN [Concomitant]
  5. CITALOPRAM [Concomitant]
  6. ONE-ALPHA [Concomitant]
  7. FUROSEMIDE [Concomitant]
  8. TRAZODONE [Concomitant]
  9. PANTOLOC [Concomitant]
  10. FOLIC ACID [Concomitant]
  11. PREDNISONE [Concomitant]
  12. HYDROXYZINE [Concomitant]
  13. TYLENOL [Concomitant]
     Route: 048
     Dates: start: 20130429
  14. BENADRYL (CANADA) [Concomitant]
     Route: 048
     Dates: start: 20130429
  15. SOLU-MEDROL [Concomitant]
     Route: 042
     Dates: start: 20130429

REACTIONS (4)
  - Death [Fatal]
  - Device failure [Recovering/Resolving]
  - Fracture [Unknown]
  - Hip arthroplasty [Unknown]
